FAERS Safety Report 9941839 (Version 1)
Quarter: 2014Q1

REPORT INFORMATION
  Report Type: Report from Study
  Country: US (occurrence: US)
  Receive Date: 20140303
  Receipt Date: 20140303
  Transmission Date: 20141002
  Serious: No
  Sender: FDA-Public Use
  Company Number: US-ABBVIE-13P-163-1040342-00

PATIENT
  Age: 67 Year
  Sex: Female

DRUGS (3)
  1. HUMIRA [Suspect]
     Indication: RHEUMATOID ARTHRITIS
     Route: 058
     Dates: start: 20120416
  2. LORTAB [Concomitant]
     Indication: MUSCULOSKELETAL PAIN
  3. IMITREX [Concomitant]
     Indication: MIGRAINE

REACTIONS (1)
  - Headache [Recovered/Resolved]
